FAERS Safety Report 19150540 (Version 1)
Quarter: 2021Q2

REPORT INFORMATION
  Report Type: Spontaneous
  Country: US (occurrence: US)
  Receive Date: 20210418
  Receipt Date: 20210418
  Transmission Date: 20210717
  Serious: No
  Sender: FDA-Public Use
  Company Number: US-SENTYNL THERAPEUTICS, INC.  -2109443

PATIENT
  Age: 69 Year
  Sex: Female

DRUGS (1)
  1. LEVORPHANOL TARTRATE. [Suspect]
     Active Substance: LEVORPHANOL TARTRATE
     Indication: PAIN
     Route: 048
     Dates: start: 201607

REACTIONS (1)
  - Product dose omission issue [Unknown]
